FAERS Safety Report 13329037 (Version 2)
Quarter: 2017Q1

REPORT INFORMATION
  Report Type: Spontaneous
  Country: JP (occurrence: JP)
  Receive Date: 20170313
  Receipt Date: 20170322
  Transmission Date: 20170428
  Serious: Yes (Other)
  Sender: FDA-Public Use
  Company Number: PHJP2017JP008174

PATIENT
  Age: 41 Year
  Sex: Female

DRUGS (2)
  1. LDK378 [Suspect]
     Active Substance: CERITINIB
     Indication: LUNG ADENOCARCINOMA
     Dosage: UNK
     Route: 048
  2. LDK378 [Suspect]
     Active Substance: CERITINIB
     Indication: NON-SMALL CELL LUNG CANCER

REACTIONS (5)
  - Neutropenia [Unknown]
  - Thrombocytopenia [Unknown]
  - Malignant neoplasm progression [Unknown]
  - Metastases to meninges [Unknown]
  - Therapeutic response decreased [Unknown]
